FAERS Safety Report 6697576-0 (Version None)
Quarter: 2010Q2

REPORT INFORMATION
  Report Type: 
  Country: None (occurrence: None)
  Receive Date: 20100426
  Receipt Date: 20090611
  Transmission Date: 20101027
  Serious: No
  Sender: FDA-Public Use
  Company Number: US-ABBOTT-09P-163-0579258-00

PATIENT
  Sex: Female

DRUGS (5)
  1. AZMACORT [Suspect]
     Indication: DRUG USE FOR UNKNOWN INDICATION
  2. BECLOMETHASONE DIPROPIONATE [Suspect]
     Indication: DRUG USE FOR UNKNOWN INDICATION
  3. FLOVENT [Suspect]
     Indication: DRUG USE FOR UNKNOWN INDICATION
  4. QVAR 40 [Suspect]
     Indication: DRUG USE FOR UNKNOWN INDICATION
  5. PULMICORT [Suspect]
     Indication: DRUG USE FOR UNKNOWN INDICATION

REACTIONS (3)
  - ANOSMIA [None]
  - NASAL CONGESTION [None]
  - RHINORRHOEA [None]
